FAERS Safety Report 23738762 (Version 1)
Quarter: 2024Q2

REPORT INFORMATION
  Report Type: Report from Study
  Country: CA (occurrence: CA)
  Receive Date: 20240413
  Receipt Date: 20240413
  Transmission Date: 20240716
  Serious: Yes (Other)
  Sender: FDA-Public Use
  Company Number: CA-ABBVIE-5717528

PATIENT
  Sex: Male

DRUGS (3)
  1. SKYRIZI [Suspect]
     Active Substance: RISANKIZUMAB-RZAA
     Indication: Psoriasis
     Dosage: FORM STRENGTH 75 MILLIGRAM?WEEK 0
     Route: 058
     Dates: start: 20211027, end: 20211027
  2. SKYRIZI [Suspect]
     Active Substance: RISANKIZUMAB-RZAA
     Dosage: FORM STRENGTH 75 MILLIGRAM?EVERY 12 WEEKS AFTER
     Route: 058
  3. SKYRIZI [Suspect]
     Active Substance: RISANKIZUMAB-RZAA
     Dosage: FORM STRENGTH 75 MILLIGRAM?WEEK 4
     Route: 058
     Dates: start: 20211124, end: 20211124

REACTIONS (1)
  - Cardiac operation [Recovering/Resolving]

NARRATIVE: CASE EVENT DATE: 20230801
